FAERS Safety Report 15681987 (Version 4)
Quarter: 2019Q2

REPORT INFORMATION
  Report Type: Spontaneous
  Country: JP (occurrence: JP)
  Receive Date: 20181203
  Receipt Date: 20190620
  Transmission Date: 20190711
  Serious: Yes (Other)
  Sender: FDA-Public Use
  Company Number: JP-GILEAD-2018-0377649

PATIENT
  Age: 42 Year
  Sex: Male

DRUGS (1)
  1. HEPSERA [Suspect]
     Active Substance: ADEFOVIR DIPIVOXIL
     Indication: HEPATITIS B
     Dosage: 10 MG, 1D
     Route: 048
     Dates: start: 20070427, end: 20181101

REACTIONS (3)
  - Hypophosphataemia [Unknown]
  - Osteomalacia [Unknown]
  - Blood phosphorus abnormal [Not Recovered/Not Resolved]
